FAERS Safety Report 16933699 (Version 1)
Quarter: 2019Q4

REPORT INFORMATION
  Report Type: Spontaneous
  Country: US (occurrence: US)
  Receive Date: 20191018
  Receipt Date: 20191018
  Transmission Date: 20200122
  Serious: Yes (Hospitalization, Other)
  Sender: FDA-Public Use
  Company Number: US-APOTEX-2019AP023601

PATIENT
  Age: 72 Year
  Sex: Female

DRUGS (1)
  1. AMLODIPINE BESYLATE. [Suspect]
     Active Substance: AMLODIPINE BESYLATE
     Indication: PRODUCT USED FOR UNKNOWN INDICATION
     Dosage: 100 DF,  (100 TABLETS OF AMLODIPINE 5 MG) SINGLE
     Route: 048

REACTIONS (8)
  - Suicide attempt [Unknown]
  - Blood sodium abnormal [Unknown]
  - Dizziness [Unknown]
  - Blood pressure decreased [Recovered/Resolved]
  - Alanine aminotransferase abnormal [Unknown]
  - Lethargy [Unknown]
  - Toxicity to various agents [Unknown]
  - Aspartate aminotransferase abnormal [Unknown]
